FAERS Safety Report 14953402 (Version 2)
Quarter: 2018Q3

REPORT INFORMATION
  Report Type: Report from Study
  Country: CA (occurrence: CA)
  Receive Date: 20180530
  Receipt Date: 20180803
  Transmission Date: 20181010
  Serious: Yes (Hospitalization)
  Sender: FDA-Public Use
  Company Number: CA-JNJFOC-20180538871

PATIENT
  Age: 15 Year
  Sex: Female
  Weight: 53 kg

DRUGS (1)
  1. REMICADE [Suspect]
     Active Substance: INFLIXIMAB
     Indication: CROHN^S DISEASE
     Dosage: STRENGTH = 100 MG
     Route: 042
     Dates: start: 20170109

REACTIONS (4)
  - Faecal calprotectin increased [Unknown]
  - Drug level decreased [Unknown]
  - Gastroenteritis salmonella [Unknown]
  - Intestinal resection [Unknown]

NARRATIVE: CASE EVENT DATE: 201804
